FAERS Safety Report 17908223 (Version 1)
Quarter: 2020Q2

REPORT INFORMATION
  Report Type: Other
  Country: CA (occurrence: CA)
  Receive Date: 20200617
  Receipt Date: 20200617
  Transmission Date: 20200714
  Serious: Yes (Other)
  Sender: FDA-Public Use
  Company Number: CA-BECTON DICKINSON-2020BDN00148

PATIENT
  Sex: Female
  Weight: 81 kg

DRUGS (21)
  1. ACTEMRA [Suspect]
     Active Substance: TOCILIZUMAB
  2. PANTOPRAZOLE [Concomitant]
     Active Substance: PANTOPRAZOLE
     Route: 042
  3. PREDNISONE. [Concomitant]
     Active Substance: PREDNISONE
  4. VITAMIN C [Concomitant]
     Active Substance: ASCORBIC ACID
  5. ARAVA [Suspect]
     Active Substance: LEFLUNOMIDE
  6. ^HYDROCHLOROQUINE^ [Concomitant]
  7. PERCOCET [Suspect]
     Active Substance: ACETAMINOPHEN\OXYCODONE HYDROCHLORIDE
  8. SIMPONI [Suspect]
     Active Substance: GOLIMUMAB
     Route: 058
  9. CETIRIZINE [Concomitant]
     Active Substance: CETIRIZINE HYDROCHLORIDE
  10. IBUPROFEN. [Concomitant]
     Active Substance: IBUPROFEN
  11. ENBREL [Suspect]
     Active Substance: ETANERCEPT
     Indication: RHEUMATOID ARTHRITIS
     Route: 058
  12. CIMZIA [Suspect]
     Active Substance: CERTOLIZUMAB PEGOL
     Indication: RHEUMATOID ARTHRITIS
     Dosage: 200 MG
     Route: 058
  13. CIMZIA [Suspect]
     Active Substance: CERTOLIZUMAB PEGOL
     Dosage: 400 MG
     Route: 058
  14. METHOTREXATE. [Suspect]
     Active Substance: METHOTREXATE
  15. ORENCIA [Suspect]
     Active Substance: ABATACEPT
     Route: 042
  16. APO-ZOPICLONE [Concomitant]
     Active Substance: ZOPICLONE
  17. COENZYME Q10 [Concomitant]
     Active Substance: UBIDECARENONE
  18. TYLENOL [Concomitant]
     Active Substance: ACETAMINOPHEN
  19. VENTOLIN [Concomitant]
     Active Substance: ALBUTEROL SULFATE
  20. CHLORAPREP [Suspect]
     Active Substance: CHLORHEXIDINE GLUCONATE\ISOPROPYL ALCOHOL
     Route: 061
  21. EPA-DHA [Concomitant]

REACTIONS (21)
  - Ear pain [Unknown]
  - Peripheral swelling [Unknown]
  - Respiratory disorder [Unknown]
  - Pruritus [Unknown]
  - Rash [Unknown]
  - Body temperature increased [Unknown]
  - Headache [Unknown]
  - Lower respiratory tract infection [Unknown]
  - Off label use [Unknown]
  - Urticaria [Unknown]
  - Abdominal pain upper [Unknown]
  - Asthenia [Unknown]
  - Insomnia [Unknown]
  - Back pain [Unknown]
  - Joint swelling [Unknown]
  - Vomiting [Unknown]
  - Diarrhoea [Unknown]
  - Night sweats [Unknown]
  - Sinusitis [Unknown]
  - Muscle spasticity [Unknown]
  - Pain [Unknown]
